FAERS Safety Report 5376738-9 (Version None)
Quarter: 2007Q3

REPORT INFORMATION
  Report Type: 
  Country: None (occurrence: None)
  Receive Date: 20070703
  Receipt Date: 20070622
  Transmission Date: 20080115
  Serious: Yes (Other)
  Sender: FDA-Public Use
  Company Number: JP-PFIZER INC-2007049975

PATIENT
  Age: 59 Year
  Sex: Female

DRUGS (3)
  1. SOLU-MEDROL [Suspect]
     Indication: SYSTEMIC LUPUS ERYTHEMATOSUS
  2. PREDNISOLONE [Concomitant]
  3. PRODIF [Concomitant]

REACTIONS (4)
  - CHEST X-RAY ABNORMAL [None]
  - HYPOALBUMINAEMIA [None]
  - HYPOCOMPLEMENTAEMIA [None]
  - RETINAL DETACHMENT [None]
